FAERS Safety Report 15417295 (Version 1)
Quarter: 2018Q3

REPORT INFORMATION
  Report Type: Report from Study
  Country: US (occurrence: US)
  Receive Date: 20180924
  Receipt Date: 20180924
  Transmission Date: 20181010
  Serious: No
  Sender: FDA-Public Use
  Company Number: PHEH2018US039723

PATIENT

DRUGS (1)
  1. SANDIMMUNE [Suspect]
     Active Substance: CYCLOSPORINE
     Indication: TRANSPLANT
     Dosage: 175 MG, (100 MG? AM, 75 MG? PM)
     Route: 048
     Dates: start: 1995

REACTIONS (1)
  - Malaise [Unknown]
